FAERS Safety Report 7349591-1 (Version None)
Quarter: 2011Q1

REPORT INFORMATION
  Report Type: 
  Country: None (occurrence: None)
  Receive Date: 20110314
  Receipt Date: 20110308
  Transmission Date: 20110831
  Serious: Yes (Other)
  Sender: FDA-Public Use
  Company Number: IT-SANOFI-AVENTIS-2011SA013924

PATIENT
  Age: 18 Year
  Sex: Female

DRUGS (5)
  1. HYDROXYPROGESTERONE CAPROATE [Concomitant]
     Route: 065
  2. MIOLENE [Concomitant]
     Route: 065
  3. VOLTAREN [Concomitant]
     Route: 065
  4. FERLIXIT [Suspect]
     Indication: ANAEMIA
     Route: 042
     Dates: start: 20110304, end: 20110304
  5. SPASMEX [Concomitant]
     Route: 065

REACTIONS (2)
  - DYSPNOEA [None]
  - SWELLING FACE [None]
